FAERS Safety Report 4823709-4 (Version None)
Quarter: 2005Q4

REPORT INFORMATION
  Report Type: 
  Country: None (occurrence: None)
  Receive Date: 20051107
  Receipt Date: 20051024
  Transmission Date: 20060501
  Serious: Yes (Death)
  Sender: FDA-Public Use
  Company Number: GXKR2005GB01861

PATIENT
  Sex: Male

DRUGS (8)
  1. FUROSEMIDE [Suspect]
  2. COMBIVENT [Suspect]
     Dosage: RESPIRATORY
     Route: 055
  3. DIDRONEL [Suspect]
  4. PREDNISONE [Suspect]
  5. SERETIDE DISKUS [Suspect]
     Dosage: 500 MCG, QD, RESPIRATORY
     Route: 055
  6. THEOPHYLLINE [Suspect]
  7. UNIPHYL [Suspect]
  8. VENTOLIN DISKUS [Suspect]
     Dosage: RESPIRATORY
     Route: 055

REACTIONS (1)
  - CHRONIC OBSTRUCTIVE PULMONARY DISEASE [None]
